FAERS Safety Report 9432170 (Version 3)
Quarter: 2013Q4

REPORT INFORMATION
  Report Type: Report from Study
  Country: DE (occurrence: DE)
  Receive Date: 20130731
  Receipt Date: 20131115
  Transmission Date: 20140711
  Serious: Yes (Death, Hospitalization)
  Sender: FDA-Public Use
  Company Number: DE-ROCHE-1248778

PATIENT
  Age: 61 Year
  Sex: Female
  Weight: 60 kg

DRUGS (26)
  1. PERTUZUMAB [Suspect]
     Indication: HER-2 POSITIVE BREAST CANCER
     Dosage: DATE OF LAST DOSE PRIOR TO SAE: 25/JUN/2013, LOADING DOSE
     Route: 042
     Dates: start: 20130514
  2. PERTUZUMAB [Suspect]
     Dosage: DATE OF LAST DOSE PRIOR TO SAE: 25/JUN/2013
     Route: 042
  3. TRASTUZUMAB [Suspect]
     Indication: HER-2 POSITIVE BREAST CANCER
     Dosage: DATE OF LAST DOSE PRIOR TO SAE: 25/JUN/2013
     Route: 042
  4. TRASTUZUMAB [Suspect]
     Dosage: DATE OF LAST DOSE PRIOR TO SAE: 25/JUN/2013, LOADING DOSE
     Route: 042
     Dates: start: 20130515
  5. VINORELBINE [Suspect]
     Indication: HER-2 POSITIVE BREAST CANCER
     Dosage: DAY 1,8. DATE OF LAST DOSE PRIOR TO SAE: 02/JUL/2013
     Route: 042
     Dates: start: 20130515
  6. NITROFURANTOIN [Concomitant]
     Dosage: 200MG DAILY
     Route: 065
     Dates: start: 20130709
  7. NITROFURANTOIN [Concomitant]
     Route: 065
     Dates: start: 20130709
  8. KALINOR [Concomitant]
     Route: 065
     Dates: start: 20130626
  9. ALLOPURINOL [Concomitant]
     Route: 065
     Dates: start: 20130626
  10. ONDANSETRON [Concomitant]
     Route: 065
     Dates: start: 20130526
  11. SALBUTAMOL [Concomitant]
     Route: 065
     Dates: start: 20130514
  12. TORASEMIDE [Concomitant]
     Route: 065
     Dates: start: 20130521
  13. RANITIC [Concomitant]
     Route: 065
     Dates: start: 20130514, end: 20130624
  14. RANITIDIN [Concomitant]
     Route: 065
     Dates: start: 20130625
  15. URSOFALK [Concomitant]
     Route: 065
     Dates: start: 2000
  16. SALOFALK [Concomitant]
     Route: 065
     Dates: start: 2000
  17. CEFUROXIME [Concomitant]
     Route: 065
     Dates: end: 20130708
  18. TARGIN [Concomitant]
     Dosage: 20/10 MG
     Route: 065
     Dates: start: 20130420
  19. PANTOPRAZOL [Concomitant]
     Route: 065
  20. PANTOPRAZOL [Concomitant]
     Route: 065
  21. NOVAMINSULFON [Concomitant]
     Route: 065
     Dates: start: 20130417
  22. RANITIDIN [Concomitant]
     Route: 065
     Dates: start: 20130514
  23. ZOPICLONE [Concomitant]
     Route: 065
  24. TAVOR (GERMANY) [Concomitant]
     Route: 065
  25. AERIUS [Concomitant]
     Route: 065
     Dates: start: 20130611
  26. FENISTIL (HYDROCORTISONE) [Concomitant]
     Route: 065
     Dates: start: 20130610

REACTIONS (1)
  - Pneumonia [Fatal]
